FAERS Safety Report 20779860 (Version 2)
Quarter: 2022Q2

REPORT INFORMATION
  Report Type: Spontaneous
  Country: US (occurrence: US)
  Receive Date: 20220503
  Receipt Date: 20220513
  Transmission Date: 20220721
  Serious: No
  Sender: FDA-Public Use
  Company Number: US-PFIZER INC-202100932500

PATIENT
  Age: 61 Year
  Sex: Male

DRUGS (3)
  1. INLYTA [Suspect]
     Active Substance: AXITINIB
     Dosage: 5 MG, 2X/DAY
     Dates: start: 20210413
  2. INLYTA [Suspect]
     Active Substance: AXITINIB
     Dosage: 5 MG, 1X/DAY
     Dates: start: 20210721, end: 20210721
  3. INLYTA [Suspect]
     Active Substance: AXITINIB
     Dosage: 5 MG, DAILY

REACTIONS (6)
  - Dyspepsia [Recovered/Resolved]
  - Nausea [Recovered/Resolved]
  - Eating disorder [Recovered/Resolved]
  - Dyspnoea [Unknown]
  - Off label use [Unknown]
  - COVID-19 [Unknown]
